FAERS Safety Report 4351767-2 (Version None)
Quarter: 2004Q2

REPORT INFORMATION
  Report Type: 
  Country: None (occurrence: None)
  Receive Date: 20040503
  Receipt Date: 20040419
  Transmission Date: 20050107
  Serious: Yes (Hospitalization)
  Sender: FDA-Public Use
  Company Number: FR-GLAXOSMITHKLINE-B0330398A

PATIENT
  Age: 69 Year
  Sex: Male
  Weight: 85 kg

DRUGS (6)
  1. DEROXAT [Suspect]
     Dosage: 10MG PER DAY
     Route: 048
  2. PREVISCAN [Suspect]
     Indication: PULMONARY EMBOLISM
     Route: 048
     Dates: start: 20040201, end: 20040327
  3. ACETAMINOPHEN [Concomitant]
     Dosage: 1000MG FOUR TIMES PER DAY
     Route: 048
  4. CLARITIN [Concomitant]
     Dosage: 10MG PER DAY
     Route: 048
  5. ALDACTONE [Concomitant]
     Indication: HYPERTENSION
     Dosage: 150MG PER DAY
     Route: 048
  6. XATRAL [Concomitant]
     Indication: BENIGN PROSTATIC HYPERPLASIA
     Dosage: 5MG PER DAY
     Route: 048

REACTIONS (13)
  - ABNORMAL BEHAVIOUR [None]
  - DISLOCATION OF JOINT PROSTHESIS [None]
  - DRUG INTERACTION [None]
  - EYELID PTOSIS [None]
  - FALL [None]
  - HAEMATOMA [None]
  - IIIRD NERVE PARALYSIS [None]
  - INTERNATIONAL NORMALISED RATIO INCREASED [None]
  - MIGRAINE [None]
  - MYDRIASIS [None]
  - PITUITARY TUMOUR BENIGN [None]
  - PROTHROMBIN LEVEL DECREASED [None]
  - SURGICAL PROCEDURE REPEATED [None]
